FAERS Safety Report 5243167-8 (Version None)
Quarter: 2007Q1

REPORT INFORMATION
  Report Type: 
  Country: None (occurrence: None)
  Receive Date: 20070215
  Receipt Date: 20070205
  Transmission Date: 20070707
  Serious: Yes (Death)
  Sender: FDA-Public Use
  Company Number: B0457542A

PATIENT

DRUGS (7)
  1. ALKERAN [Suspect]
     Indication: LYMPHOMA
     Dosage: 100 MG/M2 CYCLIC
  2. IFOSFAMIDE [Suspect]
     Indication: LYMPHOMA
     Dosage: 1.5 G/M2 CYCLIC
  3. ETOPOSIDE [Suspect]
     Indication: LYMPHOMA
  4. CYTARABINE [Suspect]
     Indication: LYMPHOMA
     Dosage: 100  MG/M2 CYCLIC
  5. DEXAMETHASONE [Suspect]
     Indication: LYMPHOMA
     Dosage: 40 MG PER DAY
  6. CYCLOPHOSPHAMIDE [Suspect]
     Indication: LYMPHOMA
     Dosage: 3 MG/M2 CYCLIC
  7. GRANULOCYTE COL. STIM.FACT [Concomitant]

REACTIONS (1)
  - TOXIC EPIDERMAL NECROLYSIS [None]
